FAERS Safety Report 7267224-X (Version None)
Quarter: 2011Q1

REPORT INFORMATION
  Report Type: 
  Country: None (occurrence: None)
  Receive Date: 20110201
  Receipt Date: 20101220
  Transmission Date: 20110831
  Serious: Yes (Hospitalization, Other)
  Sender: FDA-Public Use
  Company Number: US-BAYER-201019716NA

PATIENT
  Sex: Female
  Weight: 75 kg

DRUGS (3)
  1. OCELLA [Suspect]
     Indication: PRODUCT USED FOR UNKNOWN INDICATION
     Route: 048
  2. YAZ [Suspect]
     Indication: PRODUCT USED FOR UNKNOWN INDICATION
     Route: 048
  3. YASMIN [Suspect]
     Indication: ACNE
     Route: 048

REACTIONS (5)
  - CHOLECYSTITIS CHRONIC [None]
  - ACNE [None]
  - CEREBROVASCULAR ACCIDENT [None]
  - VIITH NERVE PARALYSIS [None]
  - CHOLELITHIASIS [None]
